FAERS Safety Report 20647809 (Version 1)
Quarter: 2022Q1

REPORT INFORMATION
  Report Type: Report from Study
  Country: US (occurrence: US)
  Receive Date: 20220329
  Receipt Date: 20220329
  Transmission Date: 20220423
  Serious: Yes (Other)
  Sender: FDA-Public Use
  Company Number: US-MYLANLABS-2022M1022819

PATIENT
  Sex: Female

DRUGS (1)
  1. CELECOXIB [Suspect]
     Active Substance: CELECOXIB
     Indication: Polyarthritis
     Dosage: 1 DOSAGE FORM, QD (1 CAPSULE WITH FOOD DAILY FOR POLYARTHRITIS 90 DAYS)
     Route: 048

REACTIONS (2)
  - Polyarthritis [Unknown]
  - Condition aggravated [Unknown]
